FAERS Safety Report 24556796 (Version 2)
Quarter: 2024Q4

REPORT INFORMATION
  Report Type: Spontaneous
  Country: US (occurrence: US)
  Receive Date: 20241028
  Receipt Date: 20241113
  Transmission Date: 20250115
  Serious: No
  Sender: PFIZER
  Company Number: US-PFIZER INC-PV202400138623

PATIENT
  Age: 60 Year
  Sex: Female

DRUGS (1)
  1. IBRANCE [Suspect]
     Active Substance: PALBOCICLIB
     Dosage: UNK

REACTIONS (6)
  - Dyspnoea [Recovered/Resolved]
  - Fatigue [Recovered/Resolved]
  - Myalgia [Unknown]
  - White blood cell count decreased [Unknown]
  - Dry skin [Unknown]
  - Muscle spasms [Unknown]

NARRATIVE: CASE EVENT DATE: 20241023
